FAERS Safety Report 9669203 (Version 1)
Quarter: 2013Q4

REPORT INFORMATION
  Report Type: Report from Study
  Country: AR (occurrence: AR)
  Receive Date: 20131105
  Receipt Date: 20131105
  Transmission Date: 20140711
  Serious: Yes (Hospitalization)
  Sender: FDA-Public Use
  Company Number: PHHY2013AR125242

PATIENT
  Age: 50 Year
  Sex: Female

DRUGS (2)
  1. RASILEZ D [Suspect]
     Dosage: UNK UKN, UNK
     Route: 048
     Dates: end: 201303
  2. RASILEZ D [Suspect]
     Dosage: 1 TABLET (300/12.5 MG), DAILY
     Route: 048
     Dates: start: 201303

REACTIONS (3)
  - Ovarian cyst [Recovered/Resolved]
  - Vaginal haemorrhage [Recovered/Resolved]
  - Endometrial hypertrophy [Recovered/Resolved]
